FAERS Safety Report 14245038 (Version 2)
Quarter: 2018Q1

REPORT INFORMATION
  Report Type: Spontaneous
  Country: CA (occurrence: CA)
  Receive Date: 20171202
  Receipt Date: 20180131
  Transmission Date: 20180508
  Serious: Yes (Other)
  Sender: FDA-Public Use
  Company Number: CA-AUROBINDO-AUR-APL-2017-43940

PATIENT
  Age: 36 Year
  Sex: Female

DRUGS (2)
  1. LIDOCAINE 2 % W/V [Suspect]
     Active Substance: LIDOCAINE
     Indication: CEREBROSPINAL FLUID LEAKAGE
     Dosage: 20 ML, UNK
     Route: 065
  2. EPINEPHRINE. [Concomitant]
     Active Substance: EPINEPHRINE
     Indication: CEREBROSPINAL FLUID LEAKAGE
     Route: 065

REACTIONS (15)
  - Dyspnoea [Recovered/Resolved]
  - Mutism [Recovered/Resolved]
  - Upper airway obstruction [None]
  - Cranial nerve palsies multiple [Recovered/Resolved]
  - Fatigue [Unknown]
  - Quadriparesis [Recovered/Resolved]
  - Malaise [Recovered/Resolved]
  - Dysarthria [Recovered/Resolved]
  - Eyelid ptosis [Recovered/Resolved]
  - Paraesthesia oral [Recovered/Resolved]
  - Cyanosis [Recovered/Resolved]
  - Ophthalmoplegia [Recovered/Resolved]
  - Accidental exposure to product [Unknown]
  - Respiratory failure [Unknown]
  - Stridor [None]
